FAERS Safety Report 25058193 (Version 1)
Quarter: 2025Q1

REPORT INFORMATION
  Report Type: Spontaneous
  Country: US (occurrence: None)
  Receive Date: 20250309
  Receipt Date: 20250309
  Transmission Date: 20250409
  Serious: Yes (Life-Threatening)
  Sender: FDA-CTU
  Company Number: None

PATIENT
  Age: 31 Year
  Sex: Male
  Weight: 139.05 kg

DRUGS (1)
  1. OMNIPAQUE [Suspect]
     Active Substance: IOHEXOL
     Indication: Pulmonary embolism
     Route: 040

REACTIONS (2)
  - Contrast media reaction [None]
  - Anaphylactic reaction [None]

NARRATIVE: CASE EVENT DATE: 20250307
